FAERS Safety Report 10176341 (Version 1)
Quarter: 2014Q2

REPORT INFORMATION
  Report Type: Spontaneous
  Country: RS (occurrence: None)
  Receive Date: 20140514
  Receipt Date: 20140514
  Transmission Date: 20141212
  Serious: Yes (Other)
  Sender: FDA-Public Use
  Company Number: VAL_03101_2014

PATIENT
  Age: 10 Year
  Sex: Male
  Weight: 63.5 kg

DRUGS (2)
  1. CARBAMAZEPINE (CARBAMAZEPINE) [Suspect]
     Indication: EPILEPSY
     Dosage: (10 MG/KG, [10 MG/KG/DAY])
  2. VALPROAT [Concomitant]

REACTIONS (5)
  - Epilepsy [None]
  - Abnormal behaviour [None]
  - Social avoidant behaviour [None]
  - Aggression [None]
  - Educational problem [None]
